FAERS Safety Report 9033870 (Version 3)
Quarter: 2013Q2

REPORT INFORMATION
  Report Type: Spontaneous
  Country: US (occurrence: US)
  Receive Date: 20130128
  Receipt Date: 20130418
  Transmission Date: 20140414
  Serious: Yes (Hospitalization, Other)
  Sender: FDA-Public Use
  Company Number: US-AMGEN-USASP2012061885

PATIENT
  Age: 50 Year
  Sex: Female
  Weight: 48.07 kg

DRUGS (1)
  1. ENBREL [Suspect]
     Indication: RHEUMATOID ARTHRITIS
     Dosage: 50 MG, QWK
     Dates: start: 20120711, end: 201209

REACTIONS (3)
  - Vasculitic rash [Not Recovered/Not Resolved]
  - Ankylosing spondylitis [Recovered/Resolved]
  - Arthralgia [Not Recovered/Not Resolved]
